FAERS Safety Report 5310931-6 (Version None)
Quarter: 2007Q2

REPORT INFORMATION
  Report Type: 
  Country: None (occurrence: None)
  Receive Date: 20070426
  Receipt Date: 20070426
  Transmission Date: 20071010
  Serious: Yes (Other)
  Sender: FDA-Public Use
  Company Number: None

PATIENT
  Age: 68 Year
  Sex: Male
  Weight: 75.2971 kg

DRUGS (1)
  1. LEVALBUTEROL HCL [Suspect]
     Indication: CHRONIC OBSTRUCTIVE PULMONARY DISEASE
     Dosage: 1.25 MG EVERY 4 HOURS INHAL
     Route: 055

REACTIONS (5)
  - BLOOD GASES ABNORMAL [None]
  - CARDIAC FAILURE CONGESTIVE [None]
  - INAPPROPRIATE SCHEDULE OF DRUG ADMINISTRATION [None]
  - MEDICATION ERROR [None]
  - OEDEMA PERIPHERAL [None]
